FAERS Safety Report 5199095-X (Version None)
Quarter: 2006Q4

REPORT INFORMATION
  Report Type: 
  Country: None (occurrence: None)
  Receive Date: 20060919
  Receipt Date: 20060310
  Transmission Date: 20070319
  Serious: Yes (Other)
  Sender: FDA-Public Use
  Company Number: HQWYE346215MAR06

PATIENT
  Age: 63 Year
  Sex: Female
  Weight: 74.91 kg

DRUGS (2)
  1. ADVIL [Suspect]
     Indication: ARTHRITIS
     Dosage: 1 CAPSULE AS NEEDED, ORAL
     Route: 048
     Dates: start: 20050101
  2. ACTONEL [Concomitant]

REACTIONS (2)
  - GLOSSODYNIA [None]
  - PHARMACEUTICAL PRODUCT COMPLAINT [None]
